FAERS Safety Report 8336112-X (Version None)
Quarter: 2012Q1

REPORT INFORMATION
  Report Type: 
  Country: None (occurrence: None)
  Receive Date: 20120329
  Receipt Date: 20091120
  Transmission Date: 20120608
  Serious: Yes (Hospitalization)
  Sender: FDA-Public Use
  Company Number: PHEH2009US16369

PATIENT
  Sex: Female
  Weight: 87.1 kg

DRUGS (9)
  1. AVAPRO [Concomitant]
  2. EXELON [Suspect]
     Indication: DEMENTIA ALZHEIMER'S TYPE
     Dosage: 4.6 MG/24 HRS, TRANSDERMAL, 9.5  MG/24 HRS, TRANSDERMAL
     Route: 062
     Dates: start: 20091027, end: 20091118
  3. ZETIA [Concomitant]
  4. LYRICA [Concomitant]
  5. ACTOS /USA/ (PIOGLITAZONE, PIOGLITAZONE HYDROCHLORIDE) [Concomitant]
  6. PRAVASTATIN [Concomitant]
  7. LEXAPRO [Concomitant]
  8. XANAX [Concomitant]
  9. FUROSEMIDE [Concomitant]

REACTIONS (1)
  - CONVULSION [None]
